FAERS Safety Report 19947421 (Version 1)
Quarter: 2021Q4

REPORT INFORMATION
  Report Type: Spontaneous
  Country: ES (occurrence: ES)
  Receive Date: 20211012
  Receipt Date: 20211012
  Transmission Date: 20220303
  Serious: Yes (Other)
  Sender: FDA-Public Use
  Company Number: ES-CELLTRION HEALTHCARE HUNGARY KFT-2021ES008263

PATIENT

DRUGS (5)
  1. MYCOPHENOLATE MOFETIL [Suspect]
     Active Substance: MYCOPHENOLATE MOFETIL
     Indication: Immune tolerance induction
     Dosage: (5-10 MG/KG/BID X 3 WEEKS)
  2. MYCOPHENOLATE MOFETIL [Suspect]
     Active Substance: MYCOPHENOLATE MOFETIL
     Dosage: 10 MILLIGRAM/KILOGRAM/DAY
  3. RITUXIMAB [Suspect]
     Active Substance: RITUXIMAB
     Indication: Immune tolerance induction
     Dosage: 375 MILLIGRAM/SQ. METER, QW (375 MG/M2, WEEKLY X 3 DOSES)
  4. BUSULFAN [Concomitant]
     Active Substance: BUSULFAN
     Indication: Bone marrow conditioning regimen
     Dosage: 3.2 MILLIGRAM/KILOGRAM (3.2 MG/KG/DAY EITHER ONE OR TWO DAYS ON DAYS 3 AND 2)
  5. CYCLOPHOSPHAMIDE [Concomitant]
     Active Substance: CYCLOPHOSPHAMIDE
     Indication: Prophylaxis against graft versus host disease
     Dosage: 50 MILLIGRAM/KILOGRAM (50 MG/KG/DAY ON DAYS +3 AND +4)

REACTIONS (6)
  - Venoocclusive liver disease [Recovered/Resolved]
  - Guillain-Barre syndrome [Recovered/Resolved]
  - Demyelinating polyneuropathy [Recovered/Resolved]
  - Bacteraemia [Unknown]
  - Drug effective for unapproved indication [Unknown]
  - Off label use [Unknown]
